FAERS Safety Report 12622155 (Version 3)
Quarter: 2018Q1

REPORT INFORMATION
  Report Type: Report from Study
  Country: GB (occurrence: GB)
  Receive Date: 20160804
  Receipt Date: 20180119
  Transmission Date: 20180508
  Serious: Yes (Death, Life-Threatening, Other)
  Sender: FDA-Public Use
  Company Number: GB-UCBSA-2016029108

PATIENT
  Age: 71 Year
  Sex: Female

DRUGS (2)
  1. CERTOLIZUMAB PEGOL RA [Suspect]
     Active Substance: CERTOLIZUMAB PEGOL
     Indication: RHEUMATOID ARTHRITIS
     Dosage: 200 MG, UNK
     Route: 058
     Dates: start: 20150624, end: 20150929
  2. SULPHASALAZINE [Concomitant]
     Active Substance: SULFASALAZINE
     Indication: RHEUMATOID ARTHRITIS
     Dosage: UNK

REACTIONS (2)
  - Non-small cell lung cancer metastatic [Fatal]
  - Lower respiratory tract infection [Unknown]

NARRATIVE: CASE EVENT DATE: 20160302
